FAERS Safety Report 4545337-0 (Version None)
Quarter: 2004Q4

REPORT INFORMATION
  Report Type: 
  Country: None (occurrence: None)
  Receive Date: 20041222
  Receipt Date: 20040922
  Transmission Date: 20050328
  Serious: Yes (Hospitalization)
  Sender: FDA-Public Use
  Company Number: US98010799A

PATIENT
  Age: 65 Year
  Sex: Male
  Weight: 84 kg

DRUGS (8)
  1. HUMULIN N [Suspect]
     Indication: DIABETES MELLITUS NON-INSULIN-DEPENDENT
     Dosage: 22 U/ 1 DAY
     Dates: start: 19870101
  2. HUMULIN R [Suspect]
     Indication: DIABETES MELLITUS NON-INSULIN-DEPENDENT
     Dosage: 6 U
     Dates: start: 19870101
  3. HUMALOG [Suspect]
     Dosage: 8 U
     Dates: start: 20031001
  4. ZOCOR [Concomitant]
  5. HYDROCHLOROTHIAZIDE WITH TRIAMTERENE (DYAZIDE) [Concomitant]
  6. AMOXICILLIN [Concomitant]
  7. AMLODIPINE [Concomitant]
  8. INSULIN GLARGINE [Concomitant]

REACTIONS (3)
  - BLOOD GLUCOSE DECREASED [None]
  - BLOOD GLUCOSE INCREASED [None]
  - SURGERY [None]
